FAERS Safety Report 13080579 (Version 1)
Quarter: 2017Q1

REPORT INFORMATION
  Report Type: Spontaneous
  Country: JP (occurrence: JP)
  Receive Date: 20170103
  Receipt Date: 20170103
  Transmission Date: 20170428
  Serious: Yes (Death, Other)
  Sender: FDA-Public Use
  Company Number: JP-CLINIGEN GROUP PLC/ CLINIGEN HEALTHCARE LTD-E2B_00005595

PATIENT
  Age: 28 Year
  Sex: Female

DRUGS (8)
  1. PREDNISOLONE - INJECTION [Concomitant]
  2. DENOSINE [Concomitant]
     Active Substance: GANCICLOVIR
     Indication: ENCEPHALITIS CYTOMEGALOVIRUS
     Route: 041
     Dates: start: 20110518
  3. FOSCAVIR [Suspect]
     Active Substance: FOSCARNET SODIUM
     Route: 041
     Dates: start: 20110420
  4. FOSCAVIR [Suspect]
     Active Substance: FOSCARNET SODIUM
     Indication: ENCEPHALITIS CYTOMEGALOVIRUS
     Route: 041
     Dates: start: 20110420
  5. DENOSINE [Concomitant]
     Active Substance: GANCICLOVIR
     Indication: ENCEPHALITIS CYTOMEGALOVIRUS
     Route: 041
     Dates: start: 20110518
  6. DENOSINE [Concomitant]
     Active Substance: GANCICLOVIR
     Route: 041
     Dates: start: 20110603
  7. FOSCAVIR [Suspect]
     Active Substance: FOSCARNET SODIUM
     Route: 041
     Dates: start: 20110603
  8. DENOSINE [Concomitant]
     Active Substance: GANCICLOVIR
     Route: 041

REACTIONS (2)
  - Encephalitis cytomegalovirus [Fatal]
  - Renal failure [Unknown]

NARRATIVE: CASE EVENT DATE: 20110420
